FAERS Safety Report 4469484-7 (Version None)
Quarter: 2004Q4

REPORT INFORMATION
  Report Type: 
  Country: None (occurrence: None)
  Receive Date: 20041005
  Receipt Date: 20041005
  Transmission Date: 20050328
  Serious: Yes (Hospitalization)
  Sender: FDA-Public Use
  Company Number: None

PATIENT
  Age: 71 Year
  Sex: Female
  Weight: 93.2 kg

DRUGS (8)
  1. AVASTIN [Suspect]
     Indication: COLORECTAL CANCER METASTATIC
     Dosage: 450 Q 2 WEEKS INTRAVENOU
     Route: 042
     Dates: start: 20040315, end: 20040914
  2. HUMULIN 70/30 [Concomitant]
  3. LASIX [Concomitant]
  4. ASPIRIN [Concomitant]
  5. AVAPRO [Concomitant]
  6. ATENOLOL [Concomitant]
  7. ACTOS [Concomitant]
  8. NEXIUM [Concomitant]

REACTIONS (6)
  - CHEST PAIN [None]
  - CORONARY ARTERY DISEASE [None]
  - DYSPNOEA [None]
  - GRAFT COMPLICATION [None]
  - PALPITATIONS [None]
  - VASCULAR GRAFT OCCLUSION [None]
